FAERS Safety Report 12456029 (Version 1)
Quarter: 2016Q2

REPORT INFORMATION
  Report Type: Spontaneous
  Country: GB (occurrence: GB)
  Receive Date: 20160610
  Receipt Date: 20160610
  Transmission Date: 20160815
  Serious: Yes (Other)
  Sender: FDA-Public Use
  Company Number: GB-PFIZER INC-2016287795

PATIENT
  Age: 7 Year
  Sex: Male

DRUGS (2)
  1. SODIUM CHLORIDE. [Suspect]
     Active Substance: SODIUM CHLORIDE
     Indication: MEDICATION DILUTION
     Dosage: 100 ML, 3X/DAY
     Dates: start: 20160516, end: 20160518
  2. MEROPENEM. [Suspect]
     Active Substance: MEROPENEM
     Dosage: 750 MG, 3X/DAY
     Dates: start: 20160516, end: 20160518

REACTIONS (2)
  - Neutropenia [Unknown]
  - Wrong drug administered [Unknown]

NARRATIVE: CASE EVENT DATE: 20160516
